FAERS Safety Report 15312476 (Version 1)
Quarter: 2018Q3

REPORT INFORMATION
  Report Type: Spontaneous
  Country: US (occurrence: US)
  Receive Date: 20180823
  Receipt Date: 20180823
  Transmission Date: 20181010
  Serious: Yes (Other)
  Sender: FDA-Public Use
  Company Number: US-SA-2018SA231257

PATIENT
  Age: 57 Year
  Sex: Female
  Weight: 81.6 kg

DRUGS (6)
  1. TAXOTERE [Suspect]
     Active Substance: DOCETAXEL
     Indication: BREAST CANCER
     Dosage: 151 MG, Q3W
     Route: 042
     Dates: start: 20130411, end: 20130411
  2. NEOSAR [Concomitant]
     Active Substance: CYCLOPHOSPHAMIDE
  3. LOSARTAN. [Concomitant]
     Active Substance: LOSARTAN
  4. TAXOTERE [Suspect]
     Active Substance: DOCETAXEL
     Dosage: 151 UNK
     Route: 042
     Dates: start: 20130725, end: 20130725
  5. ACETYLSALICYLIC ACID [Concomitant]
     Active Substance: ASPIRIN
  6. METOPROLOL. [Concomitant]
     Active Substance: METOPROLOL

REACTIONS (1)
  - Alopecia [Recovering/Resolving]

NARRATIVE: CASE EVENT DATE: 20140101
